FAERS Safety Report 9120769 (Version 2)
Quarter: 2013Q1

REPORT INFORMATION
  Report Type: Report from Study
  Country: US (occurrence: US)
  Receive Date: 20130226
  Receipt Date: 20130312
  Transmission Date: 20140127
  Serious: Yes (Hospitalization)
  Sender: FDA-Public Use
  Company Number: US-ACTELION-A-US2013-79546

PATIENT
  Age: 52 Year
  Sex: Female

DRUGS (2)
  1. VELETRI [Suspect]
     Indication: PULMONARY ARTERIAL HYPERTENSION
     Dosage: 44 NG/KG, PER MIN
     Route: 042
     Dates: start: 20121207
  2. COUMADIN [Concomitant]

REACTIONS (4)
  - Sepsis [Unknown]
  - Swelling [Unknown]
  - Dyspnoea [Unknown]
  - Catheter site pain [Not Recovered/Not Resolved]
